FAERS Safety Report 6540024-1 (Version None)
Quarter: 2010Q1

REPORT INFORMATION
  Report Type: 
  Country: None (occurrence: None)
  Receive Date: 20100115
  Receipt Date: 20100106
  Transmission Date: 20100710
  Serious: Yes (Hospitalization)
  Sender: FDA-Public Use
  Company Number: US-JNJFOC-20100101603

PATIENT
  Sex: Female

DRUGS (10)
  1. SIMPONI [Suspect]
     Indication: RHEUMATOID ARTHRITIS
     Route: 058
  2. PREDNISONE [Concomitant]
     Indication: RHEUMATOID ARTHRITIS
  3. PIROXICAM [Concomitant]
  4. OMEPRAZOLE [Concomitant]
  5. ASPIRIN [Concomitant]
  6. FUROSEMIDE [Concomitant]
     Indication: POLYURIA
  7. PROZAC [Concomitant]
  8. CALCIUM MAGNESIUM [Concomitant]
  9. VITAMIN D3 [Concomitant]
  10. AMBIEN [Concomitant]

REACTIONS (2)
  - CHEST PAIN [None]
  - PALPITATIONS [None]
